FAERS Safety Report 12169284 (Version 1)
Quarter: 2016Q1

REPORT INFORMATION
  Report Type: Spontaneous
  Country: US (occurrence: US)
  Receive Date: 20160310
  Receipt Date: 20160310
  Transmission Date: 20160526
  Serious: No
  Sender: FDA-Public Use
  Company Number: US-OTSUKA-2015_016481

PATIENT
  Sex: Female

DRUGS (1)
  1. ABILIFY MAINTENA [Suspect]
     Active Substance: ARIPIPRAZOLE
     Indication: PRODUCT USED FOR UNKNOWN INDICATION
     Dosage: 25 OR 2.5 DOSE, TWICE MONTHLY
     Route: 030
     Dates: start: 201511

REACTIONS (4)
  - Inappropriate schedule of drug administration [Unknown]
  - Incorrect dose administered [Unknown]
  - Drug monitoring procedure incorrectly performed [Unknown]
  - No adverse event [Unknown]

NARRATIVE: CASE EVENT DATE: 201511
